FAERS Safety Report 21577048 (Version 1)
Quarter: 2022Q4

REPORT INFORMATION
  Report Type: Report from Study
  Country: CR (occurrence: None)
  Receive Date: 20221110
  Receipt Date: 20221110
  Transmission Date: 20230112
  Serious: Yes (Other)
  Sender: FDA-Public Use
  Company Number: 2022A365559

PATIENT
  Age: 68 Year
  Sex: Female

DRUGS (1)
  1. TAGRISSO [Suspect]
     Active Substance: OSIMERTINIB
     Indication: Lung neoplasm malignant
     Route: 048
     Dates: start: 20210817

REACTIONS (6)
  - Liver injury [Unknown]
  - Renal injury [Unknown]
  - Epistaxis [Unknown]
  - Onychoclasis [Unknown]
  - Skin exfoliation [Unknown]
  - Tachycardia [Unknown]

NARRATIVE: CASE EVENT DATE: 20210817
